FAERS Safety Report 22211194 (Version 1)
Quarter: 2023Q2

REPORT INFORMATION
  Report Type: Spontaneous
  Country: US (occurrence: None)
  Receive Date: 20230413
  Receipt Date: 20230413
  Transmission Date: 20230722
  Serious: Yes (Hospitalization)
  Sender: FDA-Public Use
  Company Number: None

PATIENT
  Age: 72 Year
  Sex: Male
  Weight: 81.19 kg

DRUGS (19)
  1. ERLEADA [Suspect]
     Active Substance: APALUTAMIDE
     Indication: Prostate cancer
     Dosage: FREQUENCY : DAILY;?
     Route: 048
     Dates: start: 202211
  2. AMLODIPINE [Concomitant]
  3. ATROVASTATIN [Concomitant]
  4. BACLOFEN [Concomitant]
  5. ASPIRIN [Concomitant]
  6. BUSPIRONE [Concomitant]
  7. CLONAEPAM [Concomitant]
  8. CYCLOBENZAPRINE [Concomitant]
  9. DULOXETINE [Concomitant]
  10. GABAPENTIN [Concomitant]
  11. NAPROXEN [Concomitant]
     Active Substance: NAPROXEN
  12. MULTIVITAMIN [Concomitant]
  13. NORCO [Concomitant]
  14. ORGOVYX [Concomitant]
     Active Substance: RELUGOLIX
  15. SENNOSIDES [Concomitant]
  16. TAMSULOSIN [Concomitant]
  17. TRAZODONE [Concomitant]
  18. TYLENOL [Concomitant]
  19. VITAMIN D3 [Concomitant]
     Active Substance: CHOLECALCIFEROL

REACTIONS (2)
  - Product use complaint [None]
  - Oesophageal carcinoma [None]

NARRATIVE: CASE EVENT DATE: 20230410
